FAERS Safety Report 9796271 (Version 2)
Quarter: 2014Q1

REPORT INFORMATION
  Report Type: Spontaneous
  Country: PL (occurrence: PL)
  Receive Date: 20140103
  Receipt Date: 20140326
  Transmission Date: 20141002
  Serious: Yes (Other)
  Sender: FDA-Public Use
  Company Number: PL-ASTELLAS-2013EU011507

PATIENT
  Age: 57 Year
  Sex: Male

DRUGS (3)
  1. BETMIGA [Suspect]
     Indication: HYPERTONIC BLADDER
     Dosage: 50 MG, UID/QD
     Route: 048
     Dates: start: 20131215, end: 20131218
  2. VESICARE [Suspect]
     Indication: HYPERTONIC BLADDER
     Dosage: 5 MG, UID/QD
     Route: 048
     Dates: start: 20130721, end: 20130821
  3. GLUCOPHAGE [Concomitant]
     Indication: TYPE 2 DIABETES MELLITUS
     Dosage: 750 MG, UID/QD
     Route: 065
     Dates: start: 201111

REACTIONS (6)
  - Drug ineffective [Unknown]
  - Palpitations [Recovered/Resolved]
  - Insomnia [Recovered/Resolved]
  - Myalgia [Recovered/Resolved]
  - Discomfort [Recovered/Resolved]
  - Malaise [Recovered/Resolved]
